FAERS Safety Report 12618487 (Version 1)
Quarter: 2016Q3

REPORT INFORMATION
  Report Type: Spontaneous
  Country: US (occurrence: None)
  Receive Date: 20160802
  Receipt Date: 20160802
  Transmission Date: 20161109
  Serious: Yes (Hospitalization)
  Sender: FDA-Public Use
  Company Number: None

PATIENT
  Age: 57 Year
  Sex: Male
  Weight: 93.8 kg

DRUGS (17)
  1. DACLATASVIR 60MG BRISTOL MYERS SQUIBB [Suspect]
     Active Substance: DACLATASVIR
     Indication: HEPATITIS C
     Route: 048
     Dates: start: 20160414, end: 20160707
  2. CEFTRIAXONE. [Concomitant]
     Active Substance: CEFTRIAXONE
  3. OMEPRAZOLE. [Concomitant]
     Active Substance: OMEPRAZOLE
  4. RIFAXIMIN [Concomitant]
     Active Substance: RIFAXIMIN
  5. CIPRO [Concomitant]
     Active Substance: CIPROFLOXACIN HYDROCHLORIDE
  6. ADDERALL [Concomitant]
     Active Substance: AMPHETAMINE ASPARTATE\AMPHETAMINE SULFATE\DEXTROAMPHETAMINE SACCHARATE\DEXTROAMPHETAMINE SULFATE
  7. LACTULOSE. [Concomitant]
     Active Substance: LACTULOSE
  8. FERROUS SULFATE. [Concomitant]
     Active Substance: FERROUS SULFATE
  9. LASIX [Concomitant]
     Active Substance: FUROSEMIDE
  10. PROBIOTIC [Concomitant]
     Active Substance: PROBIOTICS NOS
  11. NICOTINE. [Concomitant]
     Active Substance: NICOTINE
  12. CYCLOBENZAPRINE [Concomitant]
     Active Substance: CYCLOBENZAPRINE
  13. PHENERGAN [Concomitant]
     Active Substance: PROMETHAZINE HYDROCHLORIDE
  14. SOFOSBUVIR 400MG GILEAD [Suspect]
     Active Substance: SOFOSBUVIR
     Indication: HEPATITIS C
     Route: 048
     Dates: start: 20160414, end: 20160707
  15. TRAMADOL. [Concomitant]
     Active Substance: TRAMADOL
  16. NADOLOL. [Concomitant]
     Active Substance: NADOLOL
  17. ALADACTONE [Concomitant]

REACTIONS (2)
  - Bacteraemia [None]
  - Gastroenteritis salmonella [None]

NARRATIVE: CASE EVENT DATE: 20160627
